FAERS Safety Report 26127067 (Version 1)
Quarter: 2025Q4

REPORT INFORMATION
  Report Type: Spontaneous
  Country: US (occurrence: None)
  Receive Date: 20251205
  Receipt Date: 20251205
  Transmission Date: 20260118
  Serious: Yes (Other)
  Sender: FDA-CTU
  Company Number: None

PATIENT
  Age: 59 Year
  Sex: Female
  Weight: 62.1 kg

DRUGS (1)
  1. XDEMVY [Suspect]
     Active Substance: LOTILANER
     Indication: Meibomian gland dysfunction
     Dosage: 1 DROP(S) TWICE A DAY OPHTHALMIC?
     Route: 047
     Dates: start: 20251120, end: 20251128

REACTIONS (6)
  - Scleral disorder [None]
  - Corneal infiltrates [None]
  - Vision blurred [None]
  - Therapy cessation [None]
  - Ocular hyperaemia [None]
  - Eye irritation [None]

NARRATIVE: CASE EVENT DATE: 20251125
